FAERS Safety Report 18229835 (Version 2)
Quarter: 2020Q4

REPORT INFORMATION
  Report Type: Report from Study
  Country: None (occurrence: US)
  Receive Date: 20200903
  Receipt Date: 20201221
  Transmission Date: 20210113
  Serious: Yes (Other)
  Sender: FDA-Public Use
  Company Number: US-ABBVIE-20K-163-3548733-00

PATIENT
  Age: 25 Year
  Sex: Female
  Weight: 77.18 kg

DRUGS (3)
  1. ORILISSA [Suspect]
     Active Substance: ELAGOLIX SODIUM
     Indication: ENDOMETRIOSIS
     Dosage: DECREASED DOSE
     Route: 048
     Dates: start: 201808, end: 201902
  2. ORILISSA [Suspect]
     Active Substance: ELAGOLIX SODIUM
     Route: 048
     Dates: start: 202008, end: 2020
  3. ORILISSA [Suspect]
     Active Substance: ELAGOLIX SODIUM
     Route: 048
     Dates: start: 201902

REACTIONS (9)
  - Medical procedure [Recovering/Resolving]
  - Haemorrhage [Unknown]
  - Arthralgia [Recovering/Resolving]
  - Hot flush [Recovered/Resolved]
  - Pain [Not Recovered/Not Resolved]
  - Mood altered [Recovered/Resolved]
  - Unevaluable event [Recovered/Resolved]
  - Weight increased [Not Recovered/Not Resolved]
  - Cyst [Not Recovered/Not Resolved]

NARRATIVE: CASE EVENT DATE: 201808
